FAERS Safety Report 7757704-2 (Version None)
Quarter: 2011Q3

REPORT INFORMATION
  Report Type: 
  Country: None (occurrence: None)
  Receive Date: 20110916
  Receipt Date: 20110913
  Transmission Date: 20111222
  Serious: Yes (Hospitalization)
  Sender: FDA-Public Use
  Company Number: US-MERCK-1109USA01371

PATIENT
  Age: 82 Year
  Sex: Male

DRUGS (1)
  1. JANUMET [Suspect]
     Indication: DIABETES MELLITUS
     Route: 048
     Dates: start: 20100101

REACTIONS (9)
  - SOMNOLENCE [None]
  - PNEUMONIA [None]
  - FALL [None]
  - HEART RATE IRREGULAR [None]
  - MYALGIA [None]
  - FATIGUE [None]
  - ASTHENIA [None]
  - DIZZINESS [None]
  - HEAD INJURY [None]
